FAERS Safety Report 14943164 (Version 1)
Quarter: 2018Q2

REPORT INFORMATION
  Report Type: Report from Study
  Country: IT (occurrence: IT)
  Receive Date: 20180528
  Receipt Date: 20180528
  Transmission Date: 20180711
  Serious: Yes (Other)
  Sender: FDA-Public Use
  Company Number: IT-TEVA-2018-IT-895444

PATIENT
  Age: 57 Year
  Sex: Female

DRUGS (2)
  1. LIBRADIN 10 MG CAPSULE A RILASCIO MODIFICATO [Suspect]
     Active Substance: BARNIDIPINE HYDROCHLORIDE
     Indication: HYPERTENSION
     Dosage: 10 MILLIGRAM DAILY;
     Route: 048
     Dates: start: 20180201, end: 20180207
  2. CLARITHROMYCIN. [Suspect]
     Active Substance: CLARITHROMYCIN
     Indication: MASTOIDITIS
     Dosage: 500 MILLIGRAM DAILY;
     Route: 048
     Dates: start: 20180206, end: 20180207

REACTIONS (4)
  - Tachycardia [Recovering/Resolving]
  - Dysgeusia [Recovering/Resolving]
  - Abdominal pain upper [Recovering/Resolving]
  - Nausea [Recovering/Resolving]

NARRATIVE: CASE EVENT DATE: 20180207
